FAERS Safety Report 4665721-4 (Version None)
Quarter: 2005Q2

REPORT INFORMATION
  Report Type: 
  Country: None (occurrence: None)
  Receive Date: 20050519
  Receipt Date: 20050228
  Transmission Date: 20051028
  Serious: Yes (Death)
  Sender: FDA-Public Use
  Company Number: GB-BOEHRINGER INGELHEIM PHARMACEUTICALS, INC.-2005-UK-00344UK

PATIENT
  Sex: Male

DRUGS (10)
  1. TIOTROPIUM (00015/0190/A) [Suspect]
     Route: 055
     Dates: start: 20030115
  2. PREDNISOLONE [Suspect]
     Dosage: 3 TABLETS A DAY
  3. UNIPHYLLIN CONTINUS [Suspect]
     Dosage: ONE EVERY 12 HOURS
  4. FUROSEMIDE [Suspect]
     Dosage: ONE EACH MORNING
     Dates: start: 20011129
  5. ENSURE PLUS [Suspect]
  6. RAMIPRIL [Suspect]
     Dosage: ONE TABLET DAILY
     Dates: start: 20001023
  7. SALBUTAMOL [Suspect]
     Dosage: 5MG/2.5ML FOUR TIMES DAILY
     Dates: start: 20000606
  8. SALBUTAMOL [Suspect]
     Dosage: 100MCG/INHALATION 2 DOSES AS NEEDED
     Route: 055
  9. BECLOMETHASONE DIPROPIONATE [Suspect]
     Dosage: 250 MCG/ACTUATION 2 PUFFS THREE TIMES/DAY
  10. WARFARIN SODIUM [Suspect]
     Dosage: ONE AS DIRECTED
     Dates: start: 20000418

REACTIONS (1)
  - CHRONIC OBSTRUCTIVE PULMONARY DISEASE [None]
